FAERS Safety Report 5668950-6 (Version None)
Quarter: 2008Q1

REPORT INFORMATION
  Report Type: 
  Country: None (occurrence: None)
  Receive Date: 20080317
  Receipt Date: 20080307
  Transmission Date: 20080703
  Serious: Yes (Hospitalization)
  Sender: FDA-Public Use
  Company Number: US-ROCHE-551747

PATIENT
  Age: 74 Year
  Sex: Female

DRUGS (7)
  1. BONIVA [Suspect]
     Indication: OSTEOPOROSIS
     Route: 048
     Dates: end: 20060101
  2. BONIVA [Suspect]
     Route: 048
     Dates: start: 20070101
  3. ATENOLOL [Concomitant]
  4. LIPITOR [Concomitant]
  5. MULTIVITAMIN NOS [Concomitant]
  6. VICODIN [Concomitant]
     Dosage: THE PATIENT WAS TAKING VOCODIN AS NEEDED.
  7. PERCOCET [Concomitant]
     Dosage: THE PATIENT WAS TAKING PERCOCET AS NEEDED.

REACTIONS (2)
  - INCISIONAL HERNIA [None]
  - OBSTRUCTIVE UROPATHY [None]
